FAERS Safety Report 13427725 (Version 2)
Quarter: 2017Q2

REPORT INFORMATION
  Report Type: Spontaneous
  Country: DE (occurrence: DE)
  Receive Date: 20170411
  Receipt Date: 20170428
  Transmission Date: 20170830
  Serious: Yes (Other)
  Sender: FDA-Public Use
  Company Number: DE-TAKEDA-2017TUS007731

PATIENT
  Age: 63 Year
  Sex: Female

DRUGS (8)
  1. HYLO-VISION [Concomitant]
     Active Substance: HYALURONATE SODIUM
     Dosage: UNK
  2. RHUS TOXICODENDRON [Concomitant]
     Dosage: UNK
     Route: 048
     Dates: start: 201612
  3. LOCERYL [Concomitant]
     Active Substance: AMOROLFINE HYDROCHLORIDE
     Dosage: UNK
     Dates: start: 201606
  4. L-THYROXIN HENNING [Concomitant]
     Active Substance: LEVOTHYROXINE SODIUM
     Dosage: 150 ?G, UNK
     Route: 048
  5. CARVEDILOL 1A PHARMA [Concomitant]
     Active Substance: CARVEDILOL
     Dosage: 25 MG, UNK
  6. ADENURIC [Suspect]
     Active Substance: FEBUXOSTAT
     Indication: PRODUCT USED FOR UNKNOWN INDICATION
     Dosage: UNK, QD
     Route: 048
     Dates: start: 20170211, end: 20170212
  7. TORASEMID-1A PHARMA [Concomitant]
     Active Substance: TORSEMIDE
     Dosage: 20 MG, UNK
     Route: 048
  8. SPIRONOLACTON-RATIOPHARM [Concomitant]
     Dosage: 50 MG, UNK
     Route: 048

REACTIONS (2)
  - Weight increased [Recovered/Resolved]
  - Urinary retention [Recovered/Resolved]

NARRATIVE: CASE EVENT DATE: 20170212
